FAERS Safety Report 21511326 (Version 1)
Quarter: 2022Q4

REPORT INFORMATION
  Report Type: Spontaneous
  Country: CN (occurrence: CN)
  Receive Date: 20221027
  Receipt Date: 20221027
  Transmission Date: 20230112
  Serious: Yes (Other)
  Sender: FDA-Public Use
  Company Number: None

PATIENT
  Age: 48 Year
  Sex: Female
  Weight: 55 kg

DRUGS (6)
  1. CYCLOPHOSPHAMIDE [Suspect]
     Active Substance: CYCLOPHOSPHAMIDE
     Indication: Breast cancer female
     Dosage: 0.85 G, QD, DILUTED WITH 50 ML OF 0.9 % SODIUM CHLORIDE, D2, TARGETED THERAPY
     Route: 041
     Dates: start: 20220924, end: 20220924
  2. SODIUM CHLORIDE [Suspect]
     Active Substance: SODIUM CHLORIDE
     Indication: Medication dilution
     Dosage: 50 ML, QD, USED TO DILUTE 0.85 G CYCLOPHOSPHAMIDE, D2, TARGETED THERAPY
     Route: 041
     Dates: start: 20220924, end: 20220924
  3. SODIUM CHLORIDE [Suspect]
     Active Substance: SODIUM CHLORIDE
     Dosage: 250 ML, QD, USED TO DILUTE 100 MG DOCETAXEL, D2, TARGETED THERAPY
     Route: 041
     Dates: start: 20220924, end: 20220924
  4. SODIUM CHLORIDE [Suspect]
     Active Substance: SODIUM CHLORIDE
     Dosage: 250 ML, QD, USED TO DILUTE 370 MG TRASTUZUMAB, D1, TARGETED THERAPY
     Route: 041
     Dates: start: 20220923, end: 20220923
  5. DOCETAXEL [Suspect]
     Active Substance: DOCETAXEL
     Indication: Breast cancer female
     Dosage: 100 MG,QD, DILUTED WITH 250 ML OF 0.9 % SODIUM CHLORIDE, D2, TARGETED THERAPY
     Route: 041
     Dates: start: 20220924, end: 20220924
  6. TRASTUZUMAB [Suspect]
     Active Substance: TRASTUZUMAB
     Indication: Breast cancer female
     Dosage: 370 MG, QD, DILUTED WITH 250 ML OF 0.9 % SODIUM CHLORIDE, D1, TARGETED THERAPY
     Route: 041
     Dates: start: 20220923, end: 20220923

REACTIONS (3)
  - White blood cell count decreased [Recovered/Resolved]
  - Fatigue [Unknown]
  - Asthenia [Unknown]

NARRATIVE: CASE EVENT DATE: 20221006
